FAERS Safety Report 5607683-9 (Version None)
Quarter: 2008Q1

REPORT INFORMATION
  Report Type: 
  Country: None (occurrence: None)
  Receive Date: 20080130
  Receipt Date: 20080116
  Transmission Date: 20080703
  Serious: Yes (Hospitalization, Other)
  Sender: FDA-Public Use
  Company Number: PL-AMGEN-US252142

PATIENT
  Sex: Male

DRUGS (1)
  1. ENBREL [Suspect]
     Indication: JUVENILE ARTHRITIS
     Dosage: TWICE WEEKLY DOSE NOT SPECIFIED
     Route: 058
     Dates: start: 20041201, end: 20070901

REACTIONS (5)
  - CONDITION AGGRAVATED [None]
  - CONJUNCTIVITIS [None]
  - EYE IRRITATION [None]
  - JUVENILE ARTHRITIS [None]
  - OPTIC NEURITIS [None]
